FAERS Safety Report 7509338-2 (Version None)
Quarter: 2011Q2

REPORT INFORMATION
  Report Type: 
  Country: None (occurrence: None)
  Receive Date: 20110527
  Receipt Date: 20110524
  Transmission Date: 20111010
  Serious: Yes (Death, Life-Threatening, Hospitalization, Other)
  Sender: FDA-Public Use
  Company Number: PHHO2011NL05416

PATIENT
  Sex: Male
  Weight: 75 kg

DRUGS (3)
  1. SANDIMMUNE [Suspect]
     Dosage: 400 MG
     Route: 048
     Dates: end: 20110304
  2. MYCOPHENOLIC ACID [Suspect]
     Indication: GRAFT VERSUS HOST DISEASE
     Dosage: 2160 MG
     Dates: start: 20100827, end: 20100922
  3. SANDIMMUNE [Suspect]
     Indication: GRAFT VERSUS HOST DISEASE
     Dosage: 700 MG
     Route: 048
     Dates: start: 20100824, end: 20110225

REACTIONS (10)
  - TRANSPLANT REJECTION [None]
  - HAEMOLYSIS [None]
  - PANCYTOPENIA [None]
  - FEBRILE NEUTROPENIA [None]
  - NEUTROPENIA [None]
  - THROMBOCYTOPENIA [None]
  - CEREBRAL HAEMORRHAGE [None]
  - ENTEROCOCCAL INFECTION [None]
  - TRANSPLANT FAILURE [None]
  - ANAEMIA HAEMOLYTIC AUTOIMMUNE [None]
